FAERS Safety Report 12242762 (Version 1)
Quarter: 2016Q2

REPORT INFORMATION
  Report Type: Spontaneous
  Country: US (occurrence: US)
  Receive Date: 20160406
  Receipt Date: 20160406
  Transmission Date: 20160815
  Serious: Yes (Hospitalization)
  Sender: FDA-Public Use
  Company Number: US-FRESENIUS KABI-FK201601705

PATIENT
  Age: 55 Year
  Sex: Male

DRUGS (1)
  1. BUPIVACAINE (MANUFACTURER UNKNOWN) [Suspect]
     Active Substance: BUPIVACAINE
     Indication: ANALGESIC THERAPY
     Route: 008

REACTIONS (3)
  - Hypercapnia [Unknown]
  - Hypotension [Recovered/Resolved]
  - Hypoxia [Recovering/Resolving]
